FAERS Safety Report 8513077-9 (Version None)
Quarter: 2012Q3

REPORT INFORMATION
  Report Type: 
  Country: None (occurrence: None)
  Receive Date: 20120705
  Receipt Date: 20120621
  Transmission Date: 20120928
  Serious: Yes (Hospitalization)
  Sender: FDA-Public Use
  Company Number: 2012MA007788

PATIENT
  Age: 51 Year
  Sex: Female

DRUGS (4)
  1. FEMARA [Concomitant]
  2. LYRICA [Concomitant]
  3. PANTOPRAZOLE [Concomitant]
  4. TRAMADOL HYDROCHLORIDE [Suspect]
     Indication: PRODUCT USED FOR UNKNOWN INDICATION
     Dosage: 300 MG;QD;PO
     Route: 048
     Dates: start: 20120514

REACTIONS (5)
  - DYSPNOEA [None]
  - PALPITATIONS [None]
  - ABDOMINAL DISTENSION [None]
  - ABDOMINAL PAIN UPPER [None]
  - DYSPEPSIA [None]
